FAERS Safety Report 5373113-8 (Version None)
Quarter: 2007Q2

REPORT INFORMATION
  Report Type: 
  Country: None (occurrence: None)
  Receive Date: 20070626
  Receipt Date: 20070614
  Transmission Date: 20071010
  Serious: Yes (Hospitalization)
  Sender: FDA-Public Use
  Company Number: 014914

PATIENT
  Sex: Male

DRUGS (3)
  1. FLUVOXAMINE MALEATE [Suspect]
     Dosage: 200 MG, BID, ORAL
     Route: 048
     Dates: start: 20050301, end: 20050607
  2. TOPAMAX [Concomitant]
  3. CLOZARIL [Concomitant]

REACTIONS (3)
  - EROSIVE OESOPHAGITIS [None]
  - HAEMATEMESIS [None]
  - OESOPHAGEAL ULCER [None]
